FAERS Safety Report 5453122-0 (Version None)
Quarter: 2007Q3

REPORT INFORMATION
  Report Type: 
  Country: None (occurrence: None)
  Receive Date: 20070914
  Receipt Date: 20070904
  Transmission Date: 20080115
  Serious: Yes (Other)
  Sender: FDA-Public Use
  Company Number: GB-PFIZER INC-2007073998

PATIENT
  Age: 32 Year
  Sex: Female
  Weight: 63.5 kg

DRUGS (2)
  1. CHAMPIX [Suspect]
     Indication: SMOKING CESSATION THERAPY
     Route: 048
  2. LOESTRIN [Concomitant]
     Indication: CONTRACEPTION
     Route: 048

REACTIONS (4)
  - DECREASED ACTIVITY [None]
  - IMPAIRED WORK ABILITY [None]
  - NAUSEA [None]
  - VOMITING [None]
